FAERS Safety Report 6607645-9 (Version None)
Quarter: 2010Q1

REPORT INFORMATION
  Report Type: 
  Country: None (occurrence: None)
  Receive Date: 20100205
  Receipt Date: 20100126
  Transmission Date: 20100710
  Serious: Yes (Hospitalization, Other)
  Sender: FDA-Public Use
  Company Number: AEGBR201000027

PATIENT
  Age: 43 Year

DRUGS (9)
  1. PROLASTIN [Suspect]
     Indication: ALPHA-1 ANTI-TRYPSIN
     Dosage: 4 GM; QW; IV
     Route: 042
     Dates: start: 20100112
  2. SALBUTAMOL [Concomitant]
  3. SERETIDE /01434201/ [Concomitant]
  4. TIOTROPIUM [Concomitant]
  5. ALENDRONATE SODIUM [Concomitant]
  6. AMITRIPTYLINE HCL [Concomitant]
  7. DIAZEPAM [Concomitant]
  8. DIHYDROCODEINE BITARTRATE INJ [Concomitant]
  9. LANSOPRAZOLE [Concomitant]

REACTIONS (1)
  - EPISTAXIS [None]
